APPROVED DRUG PRODUCT: OXYCODONE HYDROCHLORIDE
Active Ingredient: OXYCODONE HYDROCHLORIDE
Strength: 15MG
Dosage Form/Route: TABLET;ORAL
Application: A207119 | Product #003 | TE Code: AB
Applicant: NUVO PHARMACEUTICAL INC
Approved: Apr 12, 2016 | RLD: No | RS: No | Type: RX